FAERS Safety Report 14445943 (Version 4)
Quarter: 2018Q4

REPORT INFORMATION
  Report Type: Report from Study
  Country: US (occurrence: US)
  Receive Date: 20180126
  Receipt Date: 20181122
  Transmission Date: 20190204
  Serious: Yes (Other)
  Sender: FDA-Public Use
  Company Number: PHHY2018US009266

PATIENT
  Age: 56 Year
  Sex: Female

DRUGS (1)
  1. GILENYA [Suspect]
     Active Substance: FINGOLIMOD HYDROCHLORIDE
     Indication: MULTIPLE SCLEROSIS
     Dosage: UNK, QD
     Route: 048

REACTIONS (7)
  - Lymphocyte count decreased [Unknown]
  - Xerosis [Unknown]
  - Dizziness [Recovered/Resolved]
  - Balance disorder [Recovered/Resolved]
  - Hypoaesthesia [Recovered/Resolved]
  - White blood cell count decreased [Unknown]
  - Asthenia [Recovered/Resolved]

NARRATIVE: CASE EVENT DATE: 20171108
